FAERS Safety Report 7267275-5 (Version None)
Quarter: 2011Q1

REPORT INFORMATION
  Report Type: 
  Country: None (occurrence: None)
  Receive Date: 20110121
  Receipt Date: 20110112
  Transmission Date: 20110831
  Serious: Yes (Other)
  Sender: FDA-Public Use
  Company Number: 2011SP002368

PATIENT
  Age: 62 Year
  Sex: Female
  Weight: 79 kg

DRUGS (2)
  1. SIMVASTATIN [Concomitant]
  2. ORMIGREIN [Suspect]
     Indication: MIGRAINE
     Dosage: PO
     Route: 048
     Dates: start: 19640101

REACTIONS (2)
  - DRUG DEPENDENCE [None]
  - THROMBOSIS [None]
